FAERS Safety Report 24191116 (Version 1)
Quarter: 2024Q3

REPORT INFORMATION
  Report Type: Spontaneous
  Country: JP (occurrence: JP)
  Receive Date: 20240808
  Receipt Date: 20240808
  Transmission Date: 20241016
  Serious: Yes (Death, Other)
  Sender: OTSUKA
  Company Number: JP-OTSUKA-2020_024339

PATIENT
  Sex: Female

DRUGS (2)
  1. BUSULFEX [Suspect]
     Active Substance: BUSULFAN
     Indication: Acute lymphocytic leukaemia
     Dosage: UNK, FOUR BOTTLES AT A TIME
     Route: 065
  2. FLUDARA [Suspect]
     Active Substance: FLUDARABINE PHOSPHATE
     Indication: Product used for unknown indication
     Dosage: UNK
     Route: 065

REACTIONS (8)
  - Acute lymphocytic leukaemia [Fatal]
  - Fungal infection [Fatal]
  - Viral infection [Fatal]
  - Pneumonia fungal [Fatal]
  - Feeding disorder [Unknown]
  - Weight decreased [Unknown]
  - Contraindicated product administered [Unknown]
  - Overdose [Unknown]
